FAERS Safety Report 16313114 (Version 1)
Quarter: 2019Q2

REPORT INFORMATION
  Report Type: Spontaneous
  Country: US (occurrence: US)
  Receive Date: 20190515
  Receipt Date: 20190515
  Transmission Date: 20190711
  Serious: No
  Sender: FDA-Public Use
  Company Number: US-AMGEN-USASP2019073990

PATIENT
  Age: 65 Year
  Sex: Female

DRUGS (4)
  1. LETROZOLE. [Concomitant]
     Active Substance: LETROZOLE
     Dosage: UNK
     Dates: end: 201904
  2. XGEVA [Suspect]
     Active Substance: DENOSUMAB
     Indication: BREAST CANCER METASTATIC
     Dosage: 120 MILLIGRAM, Q4WK
     Route: 065
     Dates: start: 201903
  3. FENTANYL. [Concomitant]
     Active Substance: FENTANYL
     Indication: METASTASES TO BONE
     Dosage: 12 MICROGRAM
  4. IBRANCE [Concomitant]
     Active Substance: PALBOCICLIB
     Dosage: UNK
     Dates: end: 201904

REACTIONS (2)
  - Mobility decreased [Unknown]
  - Bone pain [Unknown]

NARRATIVE: CASE EVENT DATE: 2019
